FAERS Safety Report 4744711-7 (Version None)
Quarter: 2005Q3

REPORT INFORMATION
  Report Type: 
  Country: None (occurrence: None)
  Receive Date: 20050815
  Receipt Date: 20050804
  Transmission Date: 20060218
  Serious: Yes (Hospitalization)
  Sender: FDA-Public Use
  Company Number: US-KINGPHARMUSA00001-K200501039

PATIENT
  Age: 69 Year
  Sex: Male
  Weight: 82 kg

DRUGS (5)
  1. FLORINEF [Suspect]
     Indication: ORTHOSTATIC HYPOTENSION
     Dosage: .3 MG, QD
     Route: 048
     Dates: end: 20050701
  2. FLORINEF [Suspect]
     Dosage: .3 MG, QD
     Route: 048
     Dates: start: 20050802
  3. IMDUR [Concomitant]
     Indication: CORONARY ARTERY DISEASE
     Dosage: 90 MG, TID
     Route: 048
     Dates: start: 20050701
  4. DYAZIDE [Concomitant]
     Indication: HYPERTENSION
     Dosage: 37.5/25, QD
     Route: 048
     Dates: start: 20050701
  5. SINEMET [Concomitant]
     Indication: PARKINSON'S DISEASE
     Dosage: 25/100MG, 1/2 TABLET, TID
     Route: 048

REACTIONS (6)
  - ATRIAL FIBRILLATION [None]
  - CONFUSIONAL STATE [None]
  - HALLUCINATION [None]
  - INCORRECT DOSE ADMINISTERED [None]
  - MYOCARDIAL INFARCTION [None]
  - TREATMENT NONCOMPLIANCE [None]
